FAERS Safety Report 21785499 (Version 1)
Quarter: 2022Q4

REPORT INFORMATION
  Report Type: Spontaneous
  Country: US (occurrence: US)
  Receive Date: 20221227
  Receipt Date: 20221227
  Transmission Date: 20230112
  Serious: No
  Sender: FDA-Public Use
  Company Number: US-JNJFOC-20221240831

PATIENT
  Age: 8 Decade
  Sex: Female

DRUGS (9)
  1. ZYRTEC [Suspect]
     Active Substance: CETIRIZINE HYDROCHLORIDE
     Indication: Choking sensation
     Route: 065
     Dates: start: 2022
  2. ZYRTEC [Suspect]
     Active Substance: CETIRIZINE HYDROCHLORIDE
     Indication: Nasal congestion
  3. ZYRTEC [Suspect]
     Active Substance: CETIRIZINE HYDROCHLORIDE
     Indication: Nervous system disorder
  4. ZYRTEC [Suspect]
     Active Substance: CETIRIZINE HYDROCHLORIDE
     Indication: Sneezing
  5. OPSUMIT [Concomitant]
     Active Substance: MACITENTAN
     Indication: Product used for unknown indication
     Route: 065
     Dates: start: 202210
  6. CLARITIN [Concomitant]
     Active Substance: LORATADINE
     Indication: Choking sensation
     Route: 065
     Dates: start: 2022
  7. CLARITIN [Concomitant]
     Active Substance: LORATADINE
     Indication: Nasal congestion
  8. CLARITIN [Concomitant]
     Active Substance: LORATADINE
     Indication: Nervous system disorder
  9. CLARITIN [Concomitant]
     Active Substance: LORATADINE
     Indication: Sneezing

REACTIONS (2)
  - Sinus disorder [Unknown]
  - Off label use [Unknown]

NARRATIVE: CASE EVENT DATE: 20220101
